FAERS Safety Report 13771842 (Version 1)
Quarter: 2017Q3

REPORT INFORMATION
  Report Type: Spontaneous
  Country: GR (occurrence: GR)
  Receive Date: 20170720
  Receipt Date: 20170720
  Transmission Date: 20171127
  Serious: Yes (Other)
  Sender: FDA-Public Use
  Company Number: GR-BRISTOL-MYERS SQUIBB COMPANY-BMS-2017-063487

PATIENT
  Sex: Male

DRUGS (1)
  1. ELIQUIS [Suspect]
     Active Substance: APIXABAN
     Indication: PRODUCT USED FOR UNKNOWN INDICATION
     Dosage: 5 MG, BID
     Route: 048

REACTIONS (2)
  - Cerebrovascular accident [Unknown]
  - Chronic obstructive pulmonary disease [Unknown]
